FAERS Safety Report 9680591 (Version 1)
Quarter: 2013Q4

REPORT INFORMATION
  Report Type: Report from Study
  Country: CA (occurrence: CA)
  Receive Date: 20131111
  Receipt Date: 20131111
  Transmission Date: 20140711
  Serious: Yes (Hospitalization, Other)
  Sender: FDA-Public Use
  Company Number: CA-ROCHE-1300537

PATIENT
  Age: 44 Year
  Sex: Female
  Weight: 53.5 kg

DRUGS (8)
  1. RITUXAN [Suspect]
     Indication: SYSTEMIC LUPUS ERYTHEMATOSUS
     Route: 042
     Dates: start: 20111026
  2. RITUXAN [Suspect]
     Indication: RHEUMATOID ARTHRITIS
  3. DIPHENHYDRAMINE HCL [Concomitant]
     Indication: PREMEDICATION
     Route: 048
     Dates: start: 20111026
  4. ACETAMINOPHEN [Concomitant]
     Indication: PREMEDICATION
     Route: 048
     Dates: start: 20111026
  5. PREDNISONE [Concomitant]
     Indication: PREMEDICATION
     Route: 048
     Dates: start: 20111025
  6. METHOTREXATE [Concomitant]
  7. PLAQUENIL [Concomitant]
  8. BETAHISTINE [Concomitant]

REACTIONS (3)
  - Abdominal pain [Unknown]
  - Pancreatic enzymes increased [Recovered/Resolved]
  - Off label use [Unknown]
